FAERS Safety Report 6640630-X (Version None)
Quarter: 2010Q1

REPORT INFORMATION
  Report Type: 
  Country: None (occurrence: None)
  Receive Date: 20100318
  Receipt Date: 20100305
  Transmission Date: 20100710
  Serious: Yes (Hospitalization)
  Sender: FDA-Public Use
  Company Number: RU-ELI_LILLY_AND_COMPANY-RU201003003628

PATIENT
  Sex: Male

DRUGS (2)
  1. BYETTA [Suspect]
     Indication: TYPE 2 DIABETES MELLITUS
     Dosage: 5 UG, 2/D
     Route: 058
     Dates: start: 20100115, end: 20100218
  2. GLUCOVANCE [Concomitant]
     Dosage: 5 MG/500MG, 2/D
     Route: 048
     Dates: end: 20100218

REACTIONS (10)
  - BLOOD GLUCOSE INCREASED [None]
  - CONSTIPATION [None]
  - DECREASED APPETITE [None]
  - GASTRITIS [None]
  - LIVER DISORDER [None]
  - OESOPHAGITIS [None]
  - PANCREATIC CARCINOMA [None]
  - PANCREATITIS CHRONIC [None]
  - URINE KETONE BODY PRESENT [None]
  - WEIGHT DECREASED [None]
